FAERS Safety Report 11610875 (Version 1)
Quarter: 2015Q4

REPORT INFORMATION
  Report Type: Spontaneous
  Country: US (occurrence: None)
  Receive Date: 20151007
  Receipt Date: 20151007
  Transmission Date: 20160304
  Serious: Yes (Death)
  Sender: FDA-Public Use
  Company Number: None

PATIENT
  Age: 8 Day
  Sex: Female
  Weight: 2.4 kg

DRUGS (11)
  1. KEPPRA [Suspect]
     Active Substance: LEVETIRACETAM
     Indication: CONVULSION NEONATAL
     Dosage: 6.4 ML?PER PROTOCOL?INTRAVENOUS
     Route: 042
     Dates: start: 20150927, end: 20150927
  2. FOSPHENYTOIN [Concomitant]
     Active Substance: FOSPHENYTOIN\FOSPHENYTOIN SODIUM
  3. EPINEPHRINE. [Concomitant]
     Active Substance: EPINEPHRINE
  4. HYDROCORTISONE. [Concomitant]
     Active Substance: HYDROCORTISONE
  5. AMPICILLIN [Concomitant]
     Active Substance: AMPICILLIN
  6. CISATRICURIUM [Concomitant]
  7. PHENOBARBITAL 130 MG/ML WESTWARD [Suspect]
     Active Substance: PHENOBARBITAL
     Indication: CONVULSION NEONATAL
     Dosage: 6.4 ML?PER PROTOCOL?INTRAVENOUS
     Route: 042
     Dates: start: 20150926, end: 20150926
  8. CEFOTAXIME [Concomitant]
     Active Substance: CEFOTAXIME SODIUM
  9. KEPPRA [Suspect]
     Active Substance: LEVETIRACETAM
     Indication: DRUG THERAPY
     Dosage: 6.4 ML?PER PROTOCOL?INTRAVENOUS
     Route: 042
     Dates: start: 20150927, end: 20150927
  10. MORPHINE [Concomitant]
     Active Substance: MORPHINE
  11. DOPAMINE [Concomitant]
     Active Substance: DOPAMINE\DOPAMINE HYDROCHLORIDE

REACTIONS (1)
  - Hypoxic-ischaemic encephalopathy [None]

NARRATIVE: CASE EVENT DATE: 20151004
